FAERS Safety Report 25870074 (Version 1)
Quarter: 2025Q4

REPORT INFORMATION
  Report Type: Report from Study
  Country: CA (occurrence: CA)
  Receive Date: 20251001
  Receipt Date: 20251001
  Transmission Date: 20260117
  Serious: Yes (Other)
  Sender: OTSUKA
  Company Number: CA-MMM-Otsuka-E81HQLX2

PATIENT
  Sex: Female

DRUGS (1)
  1. TOLVAPTAN [Suspect]
     Active Substance: TOLVAPTAN
     Indication: Congenital cystic kidney disease
     Dosage: 60 MG, DAILY (DIE)
     Dates: start: 20211019, end: 202506

REACTIONS (2)
  - Pneumonia [Unknown]
  - Pyelonephritis [Unknown]

NARRATIVE: CASE EVENT DATE: 20250601
